FAERS Safety Report 9632874 (Version 2)
Quarter: 2013Q4

REPORT INFORMATION
  Report Type: Spontaneous
  Country: SG (occurrence: SG)
  Receive Date: 20131018
  Receipt Date: 20131223
  Transmission Date: 20140711
  Serious: Yes (Hospitalization)
  Sender: FDA-Public Use
  Company Number: SG-ABBVIE-13P-141-1156804-00

PATIENT
  Age: 32 Year
  Sex: Male
  Weight: 48 kg

DRUGS (4)
  1. HUMIRA [Suspect]
     Indication: CROHN^S DISEASE
     Route: 058
     Dates: start: 20130824, end: 20130920
  2. AZATHIOPRINE [Concomitant]
     Indication: CROHN^S DISEASE
     Dosage: 100MG DAILY
     Route: 048
     Dates: start: 20121109
  3. PREDNISOLONE [Concomitant]
     Indication: CROHN^S DISEASE
     Dosage: 10MG DAILY
     Route: 048
     Dates: start: 20121109
  4. ANTI-TB THERAPY [Concomitant]
     Indication: PRODUCT USED FOR UNKNOWN INDICATION
     Route: 048

REACTIONS (3)
  - Hypoaesthesia [Not Recovered/Not Resolved]
  - Diplopia [Not Recovered/Not Resolved]
  - Pulmonary tuberculosis [Not Recovered/Not Resolved]
